FAERS Safety Report 7210934-0 (Version None)
Quarter: 2011Q1

REPORT INFORMATION
  Report Type: 
  Country: None (occurrence: None)
  Receive Date: 20110105
  Receipt Date: 20101217
  Transmission Date: 20110831
  Serious: Yes (Congenital Anomaly)
  Sender: FDA-Public Use
  Company Number: A0684508A

PATIENT
  Sex: Male

DRUGS (2)
  1. PRENATAL VITAMINS [Concomitant]
  2. PAXIL [Suspect]
     Indication: ANXIETY
     Dosage: 20MG PER DAY
     Dates: start: 19990101, end: 20040101

REACTIONS (5)
  - CARDIAC VALVE DISEASE [None]
  - ATRIAL SEPTAL DEFECT [None]
  - PATENT DUCTUS ARTERIOSUS [None]
  - MATERNAL DRUGS AFFECTING FOETUS [None]
  - DRUG EXPOSURE DURING PREGNANCY [None]
